FAERS Safety Report 16210904 (Version 1)
Quarter: 2019Q2

REPORT INFORMATION
  Report Type: Spontaneous
  Country: US (occurrence: US)
  Receive Date: 20190418
  Receipt Date: 20190418
  Transmission Date: 20190711
  Serious: No
  Sender: FDA-Public Use
  Company Number: US-ELI_LILLY_AND_COMPANY-US201904009943

PATIENT
  Sex: Female

DRUGS (1)
  1. HUMALOG KWIKPEN [Suspect]
     Active Substance: INSULIN LISPRO
     Indication: TYPE 2 DIABETES MELLITUS
     Dosage: 5 IU, UNKNOWN
     Route: 058

REACTIONS (5)
  - Diarrhoea [Not Recovered/Not Resolved]
  - Psychiatric symptom [Unknown]
  - Neuropathy peripheral [Not Recovered/Not Resolved]
  - Feeling abnormal [Unknown]
  - Retinopathy [Not Recovered/Not Resolved]

NARRATIVE: CASE EVENT DATE: 2014
